FAERS Safety Report 8535524-9 (Version None)
Quarter: 2012Q3

REPORT INFORMATION
  Report Type: 
  Country: None (occurrence: None)
  Receive Date: 20120718
  Receipt Date: 20120718
  Transmission Date: 20120928
  Serious: Yes (Hospitalization, Disabling, Other)
  Sender: FDA-Public Use
  Company Number: None

PATIENT
  Age: 55 Year
  Sex: Female
  Weight: 77.1115 kg

DRUGS (2)
  1. LEVOFLOXACIN [Suspect]
     Indication: INFECTION
     Dosage: 1 PER DAY PO
     Route: 048
     Dates: start: 20111213, end: 20111227
  2. LEVOFLOXACIN [Suspect]
     Indication: INFECTION
     Dosage: 1 PER DAY PO
     Route: 048
     Dates: start: 20120108, end: 20120122

REACTIONS (3)
  - TENDONITIS [None]
  - PERIARTHRITIS [None]
  - ROTATOR CUFF SYNDROME [None]
